FAERS Safety Report 19176536 (Version 2)
Quarter: 2021Q2

REPORT INFORMATION
  Report Type: Spontaneous
  Country: JP (occurrence: JP)
  Receive Date: 20210423
  Receipt Date: 20210603
  Transmission Date: 20210717
  Serious: Yes (Hospitalization)
  Sender: FDA-Public Use
  Company Number: JP-ASTRAZENECA-2021A325285

PATIENT
  Age: 66 Year
  Sex: Male

DRUGS (14)
  1. EVOCALCET [Concomitant]
     Active Substance: EVOCALCET
     Dosage: DOSE UNKNOWN
     Route: 048
  2. TRAMADOL HYDROCHLORIDE/ACETAMINOPHEN COMBINED DRUG [Concomitant]
     Dosage: DOSE UNKNOWN
     Route: 048
  3. ESTAZOLAM. [Concomitant]
     Active Substance: ESTAZOLAM
     Dosage: DOSE UNKNOWN
     Route: 048
  4. FENTANYL. [Concomitant]
     Active Substance: FENTANYL
     Dosage: DOSE UNKNOWN
     Route: 062
  5. ASPIRIN. [Concomitant]
     Active Substance: ASPIRIN
     Dosage: DOSE UNKNOWN
     Route: 048
  6. AMLODIPINE [Concomitant]
     Active Substance: AMLODIPINE BESYLATE
     Dosage: DOSE UNKNOWN
     Route: 048
  7. LANTHANUM CARBONATE HYDRATE [Concomitant]
     Active Substance: LANTHANUM CARBONATE
     Dosage: DOSE UNKNOWN
     Route: 048
  8. CALCIUM COMPOUNDS [Concomitant]
     Dosage: DOSE UNKNOWN
     Route: 048
  9. SUVOREXANT. [Concomitant]
     Active Substance: SUVOREXANT
     Dosage: DOSE UNKNOWN
     Route: 048
  10. NEXIUM [Suspect]
     Active Substance: ESOMEPRAZOLE MAGNESIUM
     Dosage: DOSE UNKNOWN
     Route: 048
  11. CLOPIDOGREL [Concomitant]
     Active Substance: CLOPIDOGREL BISULFATE
     Dosage: DOSE UNKNOWN
     Route: 048
  12. RAMELTEON [Concomitant]
     Active Substance: RAMELTEON
     Dosage: DOSE UNKNOWN
     Route: 048
  13. OLMESARTAN [Concomitant]
     Active Substance: OLMESARTAN
     Dosage: DOSE UNKNOWN
     Route: 048
  14. TRAZODONE HYDROCHLORIDE. [Concomitant]
     Active Substance: TRAZODONE HYDROCHLORIDE
     Dosage: DOSE UNKNOWN
     Route: 048

REACTIONS (4)
  - Peripheral ischaemia [Unknown]
  - Impaired healing [Unknown]
  - Vascular graft complication [Unknown]
  - Artificial blood vessel occlusion [Unknown]

NARRATIVE: CASE EVENT DATE: 201601
